FAERS Safety Report 10288260 (Version 1)
Quarter: 2014Q3

REPORT INFORMATION
  Report Type: Spontaneous
  Country: US (occurrence: US)
  Receive Date: 20140709
  Receipt Date: 20140709
  Transmission Date: 20150326
  Serious: Yes (Other)
  Sender: FDA-Public Use
  Company Number: US-TEVA-493313USA

PATIENT
  Age: 21 Year
  Sex: Female
  Weight: 42.22 kg

DRUGS (1)
  1. PARAGARD T380A [Suspect]
     Active Substance: COPPER
     Indication: CONTRACEPTION
     Route: 015
     Dates: start: 201307, end: 20140523

REACTIONS (6)
  - Uterine spasm [Recovered/Resolved]
  - Muscle spasms [Recovered/Resolved]
  - Vaginal haemorrhage [Recovered/Resolved]
  - Pelvic inflammatory disease [Unknown]
  - Back pain [Recovered/Resolved]
  - Menorrhagia [Recovered/Resolved]

NARRATIVE: CASE EVENT DATE: 201307
